FAERS Safety Report 20729042 (Version 3)
Quarter: 2023Q1

REPORT INFORMATION
  Report Type: Spontaneous
  Country: FR (occurrence: FR)
  Receive Date: 20220420
  Receipt Date: 20230222
  Transmission Date: 20230418
  Serious: Yes (Hospitalization, Other)
  Sender: FDA-Public Use
  Company Number: FR-CELLTRION INC.-2022FR004697

PATIENT

DRUGS (8)
  1. RITUXIMAB [Suspect]
     Active Substance: RITUXIMAB
     Indication: Neuromyelitis optica spectrum disorder
     Dosage: 375 MG/M2, UNKNOWN
     Route: 042
     Dates: start: 2013
  2. RITUXIMAB [Suspect]
     Active Substance: RITUXIMAB
     Indication: Immunosuppressant drug therapy
     Dosage: 375 MG/M2, UNKNOWN (2 INFUSIONS WITH AN INTERVAL OF 2 WEEKS)
     Route: 042
  3. RITUXIMAB [Suspect]
     Active Substance: RITUXIMAB
     Dosage: UNK
     Route: 041
  4. RITUXIMAB [Suspect]
     Active Substance: RITUXIMAB
     Dosage: 375 MG/M2, Q2WEEKS (INITIALLY AT EACH RELAPSE AND THEN EVERY 6 MONTHS)
     Route: 042
     Dates: start: 2009, end: 2017
  5. MYCOPHENOLATE MOFETIL [Suspect]
     Active Substance: MYCOPHENOLATE MOFETIL
     Indication: Neuromyelitis optica spectrum disorder
     Dosage: UNKNOWN
     Route: 065
     Dates: start: 2012, end: 2016
  6. MYCOPHENOLATE MOFETIL [Suspect]
     Active Substance: MYCOPHENOLATE MOFETIL
     Indication: Immunosuppressant drug therapy
     Dosage: UNKNOWN
     Dates: start: 2012, end: 2015
  7. OFATUMUMAB [Concomitant]
     Active Substance: OFATUMUMAB
     Indication: Neuromyelitis optica spectrum disorder
     Dosage: 20 MG, QW (ONE INJECTION OF 20 MG EVERY WEEK DURING 4 WEEKS)
     Route: 065
     Dates: start: 201708, end: 2019
  8. OFATUMUMAB [Concomitant]
     Active Substance: OFATUMUMAB
     Dosage: 20 MG, Q4W (ONE INJECTION OF 20 MG EVERY 4 WEEKS)
     Route: 065

REACTIONS (9)
  - Neuromyelitis optica spectrum disorder [Unknown]
  - Anaphylactoid reaction [Unknown]
  - Device related sepsis [Recovered/Resolved]
  - Sepsis [Unknown]
  - Off label use [Unknown]
  - Condition aggravated [Unknown]
  - Infusion related reaction [Unknown]
  - Drug specific antibody present [Unknown]
  - Off label use [Unknown]

NARRATIVE: CASE EVENT DATE: 20090101
